FAERS Safety Report 12221650 (Version 4)
Quarter: 2016Q2

REPORT INFORMATION
  Report Type: Report from Study
  Country: DE (occurrence: DE)
  Receive Date: 20160330
  Receipt Date: 20160524
  Transmission Date: 20160815
  Serious: Yes (Death, Hospitalization, Other)
  Sender: FDA-Public Use
  Company Number: PHHY2016DE039380

PATIENT
  Sex: Female
  Weight: 63 kg

DRUGS (3)
  1. SPASMEX [Concomitant]
     Active Substance: TROSPIUM CHLORIDE
     Indication: PRODUCT USED FOR UNKNOWN INDICATION
     Dosage: 15 MG, QD
     Route: 065
  2. EXJADE [Suspect]
     Active Substance: DEFERASIROX
     Indication: MYELODYSPLASTIC SYNDROME
     Dosage: 250 MG, UNK
     Route: 065
     Dates: start: 20110727
  3. MACROGOL [Concomitant]
     Active Substance: POLYETHYLENE GLYCOLS
     Indication: PRODUCT USED FOR UNKNOWN INDICATION
     Dosage: 1 DF, QD
     Route: 065

REACTIONS (20)
  - Pyrexia [Recovered/Resolved]
  - General physical health deterioration [Unknown]
  - Hepatic cyst [Unknown]
  - Cholelithiasis [Unknown]
  - Anaemia [Not Recovered/Not Resolved]
  - PO2 decreased [Unknown]
  - Urosepsis [Recovered/Resolved]
  - Blood pressure systolic increased [Unknown]
  - Refractory anaemia with an excess of blasts [Fatal]
  - Escherichia bacteraemia [Unknown]
  - Pleural effusion [Unknown]
  - Haemangioma of liver [Unknown]
  - Biliary dilatation [Unknown]
  - Sepsis [Unknown]
  - Dehydration [Unknown]
  - Duodenal ulcer haemorrhage [Recovered/Resolved]
  - Somnolence [Unknown]
  - Duodenal ulcer [Unknown]
  - Pancreatic steatosis [Unknown]
  - Thrombocytopenia [Recovering/Resolving]

NARRATIVE: CASE EVENT DATE: 201407
